FAERS Safety Report 25319402 (Version 1)
Quarter: 2025Q2

REPORT INFORMATION
  Report Type: Spontaneous
  Country: US (occurrence: None)
  Receive Date: 20250514
  Receipt Date: 20250514
  Transmission Date: 20250716
  Serious: Yes (unspecified)
  Sender: FDA-CTU
  Company Number: None

PATIENT
  Age: 71 Year
  Sex: Female
  Weight: 74.4 kg

DRUGS (1)
  1. INFED [Suspect]
     Active Substance: IRON DEXTRAN
     Indication: Iron deficiency anaemia
     Route: 042
     Dates: start: 20250506, end: 20250506

REACTIONS (5)
  - Throat tightness [None]
  - Dyspnoea [None]
  - Abdominal pain [None]
  - Hypertension [None]
  - Hypoxia [None]

NARRATIVE: CASE EVENT DATE: 20250506
